FAERS Safety Report 16430403 (Version 1)
Quarter: 2019Q2

REPORT INFORMATION
  Report Type: Spontaneous
  Country: US (occurrence: US)
  Receive Date: 20190614
  Receipt Date: 20190614
  Transmission Date: 20190711
  Serious: No
  Sender: FDA-Public Use
  Company Number: US-TEVA-2019-US-1062401

PATIENT

DRUGS (1)
  1. ATENOLOL. [Suspect]
     Active Substance: ATENOLOL
     Dosage: BOTTLE 100
     Route: 065

REACTIONS (3)
  - Tendon pain [Unknown]
  - Muscle spasms [Unknown]
  - Peripheral swelling [Unknown]
